FAERS Safety Report 19064124 (Version 2)
Quarter: 2021Q2

REPORT INFORMATION
  Report Type: Report from Study
  Country: FR (occurrence: FR)
  Receive Date: 20210326
  Receipt Date: 20210409
  Transmission Date: 20210717
  Serious: Yes (Other)
  Sender: FDA-Public Use
  Company Number: FR-JNJFOC-20210205499

PATIENT
  Age: 68 Year
  Sex: Female
  Weight: 52 kg

DRUGS (5)
  1. SPRAVATO [Suspect]
     Active Substance: ESKETAMINE
     Indication: DEPRESSION
     Dates: start: 20210107, end: 20210107
  2. SPRAVATO [Suspect]
     Active Substance: ESKETAMINE
     Dates: start: 20210111, end: 20210201
  3. SPRAVATO [Suspect]
     Active Substance: ESKETAMINE
     Dates: start: 20210108, end: 20210108
  4. ZOLOFT [Concomitant]
     Active Substance: SERTRALINE HYDROCHLORIDE
     Indication: ANTIDEPRESSANT THERAPY
     Dates: start: 20201218
  5. QUETIAPINE. [Concomitant]
     Active Substance: QUETIAPINE
     Indication: POTENTIATING DRUG INTERACTION
     Dates: start: 20201219

REACTIONS (5)
  - Drug ineffective [Not Recovered/Not Resolved]
  - Hypertension [Unknown]
  - Product use issue [Unknown]
  - Off label use [Unknown]
  - Blood pressure increased [Recovered/Resolved]

NARRATIVE: CASE EVENT DATE: 20210105
